FAERS Safety Report 23910320 (Version 1)
Quarter: 2024Q2

REPORT INFORMATION
  Report Type: Spontaneous
  Country: US (occurrence: None)
  Receive Date: 20240525
  Receipt Date: 20240525
  Transmission Date: 20240716
  Serious: Yes (Hospitalization)
  Sender: FDA-Public Use
  Company Number: None

PATIENT
  Age: 65 Year
  Sex: Female
  Weight: 71 kg

DRUGS (4)
  1. FLUOROURACIL [Suspect]
     Active Substance: FLUOROURACIL
     Dates: end: 20240408
  2. IRINOTECAN [Suspect]
     Active Substance: IRINOTECAN
     Dates: end: 20240408
  3. LEUCOVORIN CALCIUM [Suspect]
     Active Substance: LEUCOVORIN CALCIUM
     Dates: end: 20240408
  4. OXALIPLATIN [Suspect]
     Active Substance: OXALIPLATIN
     Dates: end: 20240408

REACTIONS (16)
  - Enterocolitis infectious [None]
  - Diarrhoea [None]
  - Decreased appetite [None]
  - Anaemia [None]
  - Confusional state [None]
  - Neutropenia [None]
  - Pneumonia [None]
  - Tachycardia [None]
  - Generalised oedema [None]
  - Culture stool positive [None]
  - Cryptosporidiosis infection [None]
  - Electrolyte imbalance [None]
  - Hypotension [None]
  - Hyperkalaemia [None]
  - Hypoalbuminaemia [None]
  - Mental status changes [None]

NARRATIVE: CASE EVENT DATE: 20240416
